FAERS Safety Report 6375598-7 (Version None)
Quarter: 2009Q3

REPORT INFORMATION
  Report Type: 
  Country: None (occurrence: None)
  Receive Date: 20090921
  Receipt Date: 20090909
  Transmission Date: 20100115
  Serious: Yes (Hospitalization)
  Sender: FDA-Public Use
  Company Number: SPV1-2009-01803

PATIENT
  Age: 46 Year
  Sex: Female
  Weight: 63.5 kg

DRUGS (9)
  1. ADDERALL XR (AMPHETAMINE ASPARATE, AMPHETAMINE SULFATE, DEXTROAMPHETAM [Suspect]
     Indication: DEPRESSION
     Dosage: 60 MG, 1X/DAY:QD (TWO 30MG CAPS DAILY), ORAL
     Route: 048
     Dates: end: 20090101
  2. ADDERALL XR (AMPHETAMINE ASPARATE, AMPHETAMINE SULFATE, DEXTROAMPHETAM [Suspect]
     Indication: SLEEP DISORDER
     Dosage: 60 MG, 1X/DAY:QD (TWO 30MG CAPS DAILY), ORAL
     Route: 048
     Dates: end: 20090101
  3. REGLAN	/000419011 (METOCLOPRAMIDE) [Concomitant]
  4. NEXIUM [Concomitant]
  5. ESTRACE (ESTRADIOL) CAPSULE [Concomitant]
  6. OSCAL D	/00944201/ (CALCIUM CARBONATE, COLECALCIFEROL) [Concomitant]
  7. CALCITONIN (CALCITONIN) [Concomitant]
  8. NUVIGIL (ARMODAFINIL) [Concomitant]
  9. INDERAL /00030001/ (PROPRANOLOL) [Concomitant]

REACTIONS (10)
  - ASTHMA [None]
  - FIBROMYALGIA [None]
  - HYPOTHYROIDISM [None]
  - OFF LABEL USE [None]
  - OSTEOARTHRITIS [None]
  - OSTEOPOROSIS [None]
  - OVERDOSE [None]
  - RHEUMATOID ARTHRITIS [None]
  - SLEEP APNOEA SYNDROME [None]
  - SUICIDE ATTEMPT [None]
